FAERS Safety Report 6493069-4 (Version None)
Quarter: 2009Q4

REPORT INFORMATION
  Report Type: 
  Country: None (occurrence: None)
  Receive Date: 20091214
  Receipt Date: 20091203
  Transmission Date: 20100525
  Serious: Yes (Other)
  Sender: FDA-Public Use
  Company Number: US-BAYER-200927966NA

PATIENT
  Age: 24 Year
  Sex: Female
  Weight: 54 kg

DRUGS (2)
  1. MIRENA [Suspect]
     Indication: CONTRACEPTION
     Dosage: CONTINUOUS
     Route: 015
     Dates: start: 20090515, end: 20090827
  2. SERTRALINE HCL [Concomitant]
     Indication: POST-TRAUMATIC STRESS DISORDER

REACTIONS (5)
  - ABDOMINAL PAIN LOWER [None]
  - DEVICE DISLOCATION [None]
  - MEDICAL DEVICE COMPLICATION [None]
  - MENSTRUATION DELAYED [None]
  - VAGINAL HAEMORRHAGE [None]
